FAERS Safety Report 22651706 (Version 1)
Quarter: 2023Q2

REPORT INFORMATION
  Report Type: Spontaneous
  Country: US (occurrence: US)
  Receive Date: 20230628
  Receipt Date: 20230628
  Transmission Date: 20230722
  Serious: No
  Sender: FDA-Public Use
  Company Number: US-CTI BIOPHARMA-2023US03563

PATIENT

DRUGS (15)
  1. VONJO [Suspect]
     Active Substance: PACRITINIB
     Indication: Myelofibrosis
     Dosage: 100 MG, BID
     Route: 048
  2. DEFERASIROX [Concomitant]
     Active Substance: DEFERASIROX
  3. FINASTERIDE [Concomitant]
     Active Substance: FINASTERIDE
  4. FOLIC ACID [Concomitant]
     Active Substance: FOLIC ACID
  5. GLIPIZIDE [Concomitant]
     Active Substance: GLIPIZIDE
  6. VITAMIN D3 [Concomitant]
     Active Substance: CHOLECALCIFEROL
  7. HYDROCHLOROTHIAZIDE [Concomitant]
     Active Substance: HYDROCHLOROTHIAZIDE
  8. INQOVI [Concomitant]
     Active Substance: CEDAZURIDINE\DECITABINE
  9. POTASSIUM [Concomitant]
     Active Substance: POTASSIUM
  10. TAMSULOSIN [Concomitant]
     Active Substance: TAMSULOSIN
  11. MAGNESIUM [Concomitant]
     Active Substance: MAGNESIUM
  12. METFORMIN [Concomitant]
     Active Substance: METFORMIN HYDROCHLORIDE
  13. OMEPRAZOLE [Concomitant]
     Active Substance: OMEPRAZOLE
  14. AMLODIPINE [Concomitant]
     Active Substance: AMLODIPINE BESYLATE
  15. ATORVASTATIN [Concomitant]
     Active Substance: ATORVASTATIN

REACTIONS (1)
  - Product administration error [Unknown]
